FAERS Safety Report 16130624 (Version 1)
Quarter: 2019Q1

REPORT INFORMATION
  Report Type: Spontaneous
  Country: US (occurrence: US)
  Receive Date: 20190328
  Receipt Date: 20190328
  Transmission Date: 20190418
  Serious: No
  Sender: FDA-Public Use
  Company Number: US-TEVA-2019-US-1019988

PATIENT
  Sex: Female

DRUGS (5)
  1. CLONAZEPAM ACTAVIS [Suspect]
     Active Substance: CLONAZEPAM
     Indication: BIPOLAR DISORDER
     Dosage: 3 DOSAGE FORMS DAILY; 3 TABLETS A DAY
     Dates: start: 20190206
  2. CLONAZEPAM ACTAVIS [Suspect]
     Active Substance: CLONAZEPAM
     Indication: ANXIETY
  3. CLONAZEPAM ACTAVIS [Suspect]
     Active Substance: CLONAZEPAM
     Indication: DEPRESSION
  4. WELLBUTRIN XL [Concomitant]
     Active Substance: BUPROPION HYDROCHLORIDE
     Route: 065
  5. CLONAZEPAM ACTAVIS [Suspect]
     Active Substance: CLONAZEPAM
     Indication: INSOMNIA

REACTIONS (6)
  - Headache [Unknown]
  - Feeling jittery [Unknown]
  - Insomnia [Unknown]
  - Malaise [Unknown]
  - Dizziness [Unknown]
  - Product dose omission [Unknown]
